FAERS Safety Report 7638071-1 (Version None)
Quarter: 2011Q3

REPORT INFORMATION
  Report Type: 
  Country: None (occurrence: None)
  Receive Date: 20110727
  Receipt Date: 20110718
  Transmission Date: 20111222
  Serious: Yes (Other)
  Sender: FDA-Public Use
  Company Number: US-JNJFOC-20110708030

PATIENT
  Sex: Male
  Weight: 90.72 kg

DRUGS (4)
  1. SOMA [Concomitant]
     Indication: MUSCLE SPASMS
     Route: 048
  2. DIAZEPAM [Concomitant]
     Indication: MUSCLE SPASMS
     Route: 048
  3. FENTANYL CITRATE [Suspect]
     Indication: PAIN
     Route: 062
  4. DURAGESIC-100 [Suspect]
     Indication: PAIN
     Dosage: 3 PATCHES OF 100 UG/HR
     Route: 062
     Dates: start: 20020101, end: 20100501

REACTIONS (5)
  - BREAKTHROUGH PAIN [None]
  - TOOTH DISORDER [None]
  - HEPATITIS C [None]
  - TOOTH LOSS [None]
  - HEPATIC CIRRHOSIS [None]
